FAERS Safety Report 8499299-4 (Version None)
Quarter: 2012Q3

REPORT INFORMATION
  Report Type: 
  Country: None (occurrence: None)
  Receive Date: 20120710
  Receipt Date: 20120706
  Transmission Date: 20120928
  Serious: Yes (Other)
  Sender: FDA-Public Use
  Company Number: PHHY2012AU055412

PATIENT
  Sex: Female

DRUGS (3)
  1. ZOLEDRONOC ACID [Suspect]
     Dosage: 5 MG, UNK
     Route: 042
     Dates: start: 20110811
  2. MINOCYCLINE HYDROCHLORIDE [Suspect]
     Dosage: UNK UKN, UNK
  3. ZOLEDRONOC ACID [Suspect]
     Dosage: 5 MG, UNK
     Route: 042
     Dates: start: 20100805

REACTIONS (5)
  - PIGMENTATION DISORDER [None]
  - JOINT INJURY [None]
  - CONTUSION [None]
  - SKIN DISCOLOURATION [None]
  - FALL [None]
